FAERS Safety Report 9450201 (Version 1)
Quarter: 2013Q3

REPORT INFORMATION
  Report Type: Report from Study
  Country: US (occurrence: US)
  Receive Date: 20130809
  Receipt Date: 20130809
  Transmission Date: 20140515
  Serious: Yes (Hospitalization)
  Sender: FDA-Public Use
  Company Number: US-ROCHE-1258828

PATIENT
  Sex: Female

DRUGS (3)
  1. RITUXIMAB [Suspect]
     Indication: NON-HODGKIN^S LYMPHOMA STAGE IV
     Route: 042
     Dates: start: 2003
  2. RITUXIMAB [Suspect]
     Route: 042
     Dates: start: 20130719
  3. COUMADIN [Concomitant]
     Route: 048

REACTIONS (2)
  - Blood test abnormal [Unknown]
  - Dysgeusia [Unknown]
